FAERS Safety Report 10208553 (Version 1)
Quarter: 2014Q2

REPORT INFORMATION
  Report Type: Spontaneous
  Country: US (occurrence: None)
  Receive Date: 20140529
  Receipt Date: 20140529
  Transmission Date: 20141212
  Serious: Yes (Other)
  Sender: FDA-Public Use
  Company Number: None

PATIENT
  Age: 69 Year
  Sex: Female

DRUGS (6)
  1. ORENCIA [Suspect]
     Indication: RHEUMATOID ARTHRITIS
     Route: 058
     Dates: start: 20140502
  2. SULFUZINE [Concomitant]
  3. PREDNISONE [Concomitant]
  4. HYDROXYCHLO. [Concomitant]
  5. ALENDRONATE [Concomitant]
  6. CENTRUM [Concomitant]

REACTIONS (4)
  - Peripheral swelling [None]
  - Peripheral swelling [None]
  - Gait disturbance [None]
  - Pain [None]
